FAERS Safety Report 8958622 (Version 1)
Quarter: 2012Q4

REPORT INFORMATION
  Report Type: Spontaneous
  Country: US (occurrence: None)
  Receive Date: 20121203
  Receipt Date: 20121203
  Transmission Date: 20130627
  Serious: Yes (Hospitalization)
  Sender: FDA-Public Use
  Company Number: SPR-00101

PATIENT
  Age: 70 Year
  Sex: Female

DRUGS (4)
  1. PHENTERMINE [Suspect]
  2. METFORMIN [Concomitant]
  3. OMEPRAZOLE [Concomitant]
  4. CALCIUM PLUS VITAMIN D [Concomitant]

REACTIONS (3)
  - Ventricular fibrillation [None]
  - Arteriospasm coronary [None]
  - Loss of consciousness [None]
